FAERS Safety Report 5174602-1 (Version None)
Quarter: 2006Q4

REPORT INFORMATION
  Report Type: 
  Country: None (occurrence: None)
  Receive Date: 20061214
  Receipt Date: 20061204
  Transmission Date: 20070319
  Serious: Yes (Hospitalization)
  Sender: FDA-Public Use
  Company Number: FR-GILEAD-2006-0010780

PATIENT
  Age: 40 Year
  Sex: Male

DRUGS (7)
  1. TRUVADA [Suspect]
     Indication: HIV INFECTION
     Route: 048
     Dates: end: 20061019
  2. VIDEX [Suspect]
     Indication: HIV INFECTION
     Route: 048
     Dates: end: 20061019
  3. TELZIR [Concomitant]
     Indication: HIV INFECTION
  4. NORVIR [Concomitant]
     Indication: HIV INFECTION
  5. TRIFLUCAN [Concomitant]
     Indication: ORAL CANDIDIASIS
  6. TRIFLUCAN [Concomitant]
     Indication: OESOPHAGEAL CANDIDIASIS
  7. DEPAKENE [Concomitant]
     Indication: EPILEPSY

REACTIONS (5)
  - FANCONI SYNDROME ACQUIRED [None]
  - GENERAL PHYSICAL HEALTH DETERIORATION [None]
  - NEPHROGENIC DIABETES INSIPIDUS [None]
  - OEDEMA PERIPHERAL [None]
  - WEIGHT DECREASED [None]
